FAERS Safety Report 25858344 (Version 1)
Quarter: 2025Q3

REPORT INFORMATION
  Report Type: Spontaneous
  Country: EU (occurrence: EU)
  Receive Date: 20250929
  Receipt Date: 20250929
  Transmission Date: 20251020
  Serious: Yes (Other)
  Sender: BAYER HEALTHCARE PHARMACEUTICALS INC.
  Company Number: EU-BAYER-2025A127023

PATIENT
  Age: 67 Year
  Sex: Female
  Weight: 81 kg

DRUGS (9)
  1. FINERENONE [Suspect]
     Active Substance: FINERENONE
  2. EMPAGLIFLOZIN\METFORMIN HYDROCHLORIDE [Concomitant]
     Active Substance: EMPAGLIFLOZIN\METFORMIN HYDROCHLORIDE
  3. METFORMIN [Concomitant]
     Active Substance: METFORMIN HYDROCHLORIDE
  4. SEMAGLUTIDE [Concomitant]
     Active Substance: SEMAGLUTIDE
     Route: 058
  5. PIOGLITAZONE [Concomitant]
     Active Substance: PIOGLITAZONE
     Dosage: 30 MG, QD
  6. Perindopril/Amlodipine HCS [Concomitant]
  7. NEBIVOLOL [Concomitant]
     Active Substance: NEBIVOLOL
     Dosage: 5 MG, QD
  8. ATORVASTATIN [Concomitant]
     Active Substance: ATORVASTATIN
  9. VITAMIN D [Concomitant]
     Active Substance: VITAMIN D NOS

REACTIONS (2)
  - Chronic respiratory disease [None]
  - Glomerular filtration rate increased [None]
